FAERS Safety Report 10539957 (Version 1)
Quarter: 2014Q4

REPORT INFORMATION
  Report Type: Spontaneous
  Country: US (occurrence: None)
  Receive Date: 20141023
  Receipt Date: 20141023
  Transmission Date: 20150529
  Serious: Yes (Hospitalization)
  Sender: FDA-Public Use
  Company Number: None

PATIENT
  Age: 41 Year
  Sex: Female
  Weight: 44 kg

DRUGS (1)
  1. AXITINIB [Suspect]
     Active Substance: AXITINIB
     Indication: METASTATIC RENAL CELL CARCINOMA
     Route: 048
     Dates: start: 20140821, end: 20140926

REACTIONS (4)
  - Gastrointestinal toxicity [None]
  - Pain [None]
  - Posterior reversible encephalopathy syndrome [None]
  - Hypertension [None]

NARRATIVE: CASE EVENT DATE: 20140926
